FAERS Safety Report 18386415 (Version 1)
Quarter: 2020Q4

REPORT INFORMATION
  Report Type: Spontaneous
  Country: US (occurrence: US)
  Receive Date: 20201014
  Receipt Date: 20201014
  Transmission Date: 20210114
  Serious: Yes (Death)
  Sender: FDA-Public Use
  Company Number: None

PATIENT
  Age: 73 Year
  Sex: Male
  Weight: 109 kg

DRUGS (26)
  1. AZITHROMYCIN ANHYDROUS. [Concomitant]
     Active Substance: AZITHROMYCIN ANHYDROUS
  2. CEFTRIAXONE. [Concomitant]
     Active Substance: CEFTRIAXONE
  3. CHLORHEXIDINE [Concomitant]
     Active Substance: CHLORHEXIDINE
  4. DULOXETINE. [Concomitant]
     Active Substance: DULOXETINE
  5. PIPERACILLIN AND TAZOBACTAM [Concomitant]
     Active Substance: PIPERACILLIN SODIUM\TAZOBACTAM SODIUM
  6. PRAVASTATIN. [Concomitant]
     Active Substance: PRAVASTATIN
  7. REMDESIVIR SOLUTION 100 MG VIAL [Suspect]
     Active Substance: REMDESIVIR
     Indication: COVID-19 PNEUMONIA
     Route: 042
     Dates: start: 20200805, end: 20200805
  8. ASPIRIN. [Concomitant]
     Active Substance: ASPIRIN
  9. INSULIN, REGULAR [Concomitant]
     Active Substance: INSULIN NOS
  10. LIPID (SMOFLIPID) [Concomitant]
  11. ACETAMINOPHEN. [Concomitant]
     Active Substance: ACETAMINOPHEN
  12. ALBUTEROL. [Concomitant]
     Active Substance: ALBUTEROL
  13. APIXABAN [Concomitant]
     Active Substance: APIXABAN
  14. PREGABALIN. [Concomitant]
     Active Substance: PREGABALIN
  15. TRAZODONE [Concomitant]
     Active Substance: TRAZODONE HYDROCHLORIDE
  16. REMDESIVIR SOLUTION 100 MG VIAL [Suspect]
     Active Substance: REMDESIVIR
     Indication: COVID-19 PNEUMONIA
     Dosage: ?          OTHER FREQUENCY:Q24 HR ;?
     Route: 042
     Dates: start: 20200806, end: 20200809
  17. DILTIAZEM. [Concomitant]
     Active Substance: DILTIAZEM
  18. FUROSEMIDE. [Concomitant]
     Active Substance: FUROSEMIDE
  19. MELATONIN [Concomitant]
     Active Substance: MELATONIN
  20. MUPIROCIN. [Concomitant]
     Active Substance: MUPIROCIN
  21. TPN [Concomitant]
     Active Substance: AMINO ACIDS\DEXTROSE\ELECTROLYTES NOS\SOYBEAN OIL
  22. AMINO ACID [Concomitant]
     Active Substance: AMINO ACIDS, SOURCE UNSPECIFIED
  23. DEXAMETHASONE. [Concomitant]
     Active Substance: DEXAMETHASONE
  24. METOPROLOL SUCCINATE. [Concomitant]
     Active Substance: METOPROLOL SUCCINATE
  25. TELMISARTAN. [Concomitant]
     Active Substance: TELMISARTAN
  26. VANCOMYCIN [Concomitant]
     Active Substance: VANCOMYCIN

REACTIONS (1)
  - Respiratory failure [None]

NARRATIVE: CASE EVENT DATE: 20200902
